FAERS Safety Report 4807365-7 (Version None)
Quarter: 2005Q4

REPORT INFORMATION
  Report Type: 
  Country: None (occurrence: None)
  Receive Date: 20051024
  Receipt Date: 20050120
  Transmission Date: 20060501
  Serious: Yes (Hospitalization, Disabling)
  Sender: FDA-Public Use
  Company Number: US-MERCK-0501USA03234

PATIENT
  Age: 69 Year
  Sex: Female
  Weight: 64 kg

DRUGS (8)
  1. VIOXX [Suspect]
     Indication: INTERVERTEBRAL DISC DEGENERATION
     Route: 048
     Dates: start: 19990728, end: 20020331
  2. VIOXX [Suspect]
     Indication: OSTEOARTHRITIS
     Route: 048
     Dates: start: 19990728, end: 20020331
  3. PAXIL [Concomitant]
     Indication: MENOPAUSAL SYMPTOMS
     Route: 065
     Dates: start: 19950101
  4. PAXIL [Concomitant]
     Indication: DEPRESSION
     Route: 065
     Dates: start: 19950101
  5. OGEN [Concomitant]
     Indication: POSTMENOPAUSE
     Route: 065
  6. PROVERA [Concomitant]
     Indication: POSTMENOPAUSE
     Route: 065
     Dates: start: 19850101, end: 20011201
  7. TYLENOL (CAPLET) [Concomitant]
     Indication: ARTHRALGIA
     Route: 065
  8. DYAZIDE [Concomitant]
     Indication: ABDOMINAL DISTENSION
     Route: 065

REACTIONS (7)
  - ANGINA PECTORIS [None]
  - DEPRESSION [None]
  - HYPERTENSION [None]
  - HYSTERECTOMY [None]
  - SPINAL CORD INFARCTION [None]
  - SYNCOPE VASOVAGAL [None]
  - TRANSIENT ISCHAEMIC ATTACK [None]
